FAERS Safety Report 13053258 (Version 1)
Quarter: 2016Q4

REPORT INFORMATION
  Report Type: Spontaneous
  Country: US (occurrence: US)
  Receive Date: 20161222
  Receipt Date: 20161222
  Transmission Date: 20170207
  Serious: Yes (Hospitalization, Other)
  Sender: FDA-Public Use
  Company Number: US-ASTRAZENECA-2016SF32148

PATIENT
  Age: 16315 Day
  Sex: Female
  Weight: 58.1 kg

DRUGS (2)
  1. BRILINTA [Suspect]
     Active Substance: TICAGRELOR
     Indication: MYOCARDIAL INFARCTION
     Route: 048
     Dates: start: 201604
  2. ASPIRIN. [Concomitant]
     Active Substance: ASPIRIN
     Indication: MYOCARDIAL INFARCTION
     Route: 048
     Dates: start: 20160416

REACTIONS (6)
  - Myocardial necrosis marker increased [Unknown]
  - Heart rate irregular [Unknown]
  - Hypertension [Unknown]
  - Blood cholesterol increased [Unknown]
  - Coronary artery occlusion [Unknown]
  - Chest discomfort [Unknown]

NARRATIVE: CASE EVENT DATE: 201608
